FAERS Safety Report 20079565 (Version 2)
Quarter: 2021Q4

REPORT INFORMATION
  Report Type: Spontaneous
  Country: US (occurrence: US)
  Receive Date: 20211117
  Receipt Date: 20211126
  Transmission Date: 20220303
  Serious: No
  Sender: FDA-Public Use
  Company Number: US-SA-SAC20211115001209

PATIENT
  Age: 55 Year
  Sex: Female

DRUGS (4)
  1. KEVZARA [Suspect]
     Active Substance: SARILUMAB
     Indication: Rheumatoid arthritis
     Dosage: 150 MG, QW
     Route: 058
     Dates: start: 20190626
  2. KEVZARA [Suspect]
     Active Substance: SARILUMAB
     Indication: Psoriatic arthropathy
     Dosage: 150 MG, QW
  3. METHOTREXATE [Suspect]
     Active Substance: METHOTREXATE
     Indication: Rheumatoid arthritis
     Dosage: UNK
  4. METHOTREXATE [Suspect]
     Active Substance: METHOTREXATE
     Indication: Psoriatic arthropathy

REACTIONS (6)
  - Pruritus [Unknown]
  - Skin burning sensation [Unknown]
  - Pain [Unknown]
  - Unevaluable event [Unknown]
  - Product use issue [Unknown]
  - Product use in unapproved indication [Unknown]

NARRATIVE: CASE EVENT DATE: 20190626
